FAERS Safety Report 23026097 (Version 1)
Quarter: 2023Q4

REPORT INFORMATION
  Report Type: Spontaneous
  Country: US (occurrence: US)
  Receive Date: 20231004
  Receipt Date: 20231004
  Transmission Date: 20240110
  Serious: No
  Sender: FDA-Public Use
  Company Number: US-GSK-US2023131140

PATIENT
  Age: 87 Year
  Sex: Female

DRUGS (7)
  1. NUCALA [Suspect]
     Active Substance: MEPOLIZUMAB
     Indication: Hypereosinophilic syndrome
     Dosage: UNK, 3 VIALS GIVEN AT HOSPITAL MONTHLY
  2. LEVEMIR [Concomitant]
     Active Substance: INSULIN DETEMIR
     Indication: Diabetes mellitus
     Dosage: UNK
  3. LEVEMIR [Concomitant]
     Active Substance: INSULIN DETEMIR
     Indication: Hypertension
  4. LEVEMIR [Concomitant]
     Active Substance: INSULIN DETEMIR
     Indication: Atrial fibrillation
  5. TRULICITY [Concomitant]
     Active Substance: DULAGLUTIDE
     Indication: Hypertension
     Dosage: UNK
  6. TRULICITY [Concomitant]
     Active Substance: DULAGLUTIDE
     Indication: Diabetes mellitus
  7. TRULICITY [Concomitant]
     Active Substance: DULAGLUTIDE
     Indication: Atrial fibrillation

REACTIONS (1)
  - Fatigue [Not Recovered/Not Resolved]
